FAERS Safety Report 12600729 (Version 1)
Quarter: 2016Q3

REPORT INFORMATION
  Report Type: Spontaneous
  Country: GB (occurrence: GB)
  Receive Date: 20160727
  Receipt Date: 20160727
  Transmission Date: 20161109
  Serious: Yes (Other)
  Sender: FDA-Public Use
  Company Number: GB-TEVA-680186USA

PATIENT
  Age: 50 Year
  Sex: Female
  Weight: 60.77 kg

DRUGS (4)
  1. VITAMIN D [Concomitant]
     Active Substance: CHOLECALCIFEROL
     Indication: PRODUCT USED FOR UNKNOWN INDICATION
     Dosage: NONE TAKEN THE DAY PRESCRIPTION GIVEN
  2. LEVONORGESTREL. [Suspect]
     Active Substance: LEVONORGESTREL
     Indication: CONTRACEPTION
     Route: 048
     Dates: start: 20160706
  3. BIOTIN [Concomitant]
     Active Substance: BIOTIN
     Indication: PRODUCT USED FOR UNKNOWN INDICATION
     Dosage: NONE TAKEN THE DAY PRESCRIPTION GIVEN
  4. VITAMINS NOS [Concomitant]
     Active Substance: VITAMINS
     Indication: PRODUCT USED FOR UNKNOWN INDICATION

REACTIONS (6)
  - Influenza like illness [Unknown]
  - Insomnia [Unknown]
  - Malaise [Unknown]
  - Headache [Unknown]
  - Pruritus [Unknown]
  - Impaired work ability [Unknown]

NARRATIVE: CASE EVENT DATE: 20160706
